FAERS Safety Report 7496651-0 (Version None)
Quarter: 2011Q2

REPORT INFORMATION
  Report Type: 
  Country: None (occurrence: None)
  Receive Date: 20110523
  Receipt Date: 20110512
  Transmission Date: 20111010
  Serious: Yes (Death)
  Sender: FDA-Public Use
  Company Number: A0924068A

PATIENT
  Age: 76 Year
  Sex: Male

DRUGS (1)
  1. COREG [Suspect]
     Dosage: 25MG UNKNOWN
     Route: 048
     Dates: start: 20081201, end: 20101201

REACTIONS (1)
  - DEATH [None]
